FAERS Safety Report 5391394-1 (Version None)
Quarter: 2007Q3

REPORT INFORMATION
  Report Type: 
  Country: None (occurrence: None)
  Receive Date: 20070719
  Receipt Date: 20070709
  Transmission Date: 20080115
  Serious: Yes (Hospitalization, Other)
  Sender: FDA-Public Use
  Company Number: US-AMGEN-US232881

PATIENT
  Sex: Male
  Weight: 70 kg

DRUGS (13)
  1. EPOGEN [Suspect]
     Indication: DIALYSIS
     Dates: start: 20061218
  2. TEMAZEPAM [Concomitant]
  3. CALCIUM WITH VITAMIN D [Concomitant]
  4. HYDROXYZINE [Concomitant]
  5. RENAGEL [Concomitant]
  6. METOPROLOL TARTRATE [Concomitant]
  7. BISACODYL [Concomitant]
  8. VITAMIN B COMPLEX CAP [Concomitant]
  9. CYCLOBENZAPRINE HCL [Concomitant]
  10. DIPHENHYDRAMINE HCL [Concomitant]
  11. IMURAN [Concomitant]
     Dates: start: 19920101, end: 20061001
  12. CYCLOSPORINE [Concomitant]
     Dates: start: 19920101, end: 20061001
  13. CORTICOSTEROID NOS [Concomitant]
     Dates: start: 19920101, end: 20061001

REACTIONS (3)
  - ABDOMINAL PAIN [None]
  - NORMOCHROMIC NORMOCYTIC ANAEMIA [None]
  - THROMBOCYTOPENIA [None]
